FAERS Safety Report 13119819 (Version 1)
Quarter: 2017Q1

REPORT INFORMATION
  Report Type: Spontaneous
  Country: US (occurrence: US)
  Receive Date: 20170117
  Receipt Date: 20170117
  Transmission Date: 20170428
  Serious: Yes (Other)
  Sender: FDA-Public Use
  Company Number: US-AMGEN-USASP2016176370

PATIENT
  Age: 63 Year
  Sex: Female
  Weight: 76.19 kg

DRUGS (1)
  1. REPATHA [Suspect]
     Active Substance: EVOLOCUMAB
     Indication: TYPE IIA HYPERLIPIDAEMIA
     Dosage: 140 MG, Q2WK
     Route: 058
     Dates: start: 20161212, end: 20161212

REACTIONS (5)
  - Musculoskeletal pain [Unknown]
  - Drug hypersensitivity [Recovered/Resolved]
  - Injection site vesicles [Unknown]
  - Arthralgia [Unknown]
  - Mobility decreased [Unknown]

NARRATIVE: CASE EVENT DATE: 20161212
